FAERS Safety Report 8951635 (Version 1)
Quarter: 2012Q4

REPORT INFORMATION
  Report Type: 
  Country: ES (occurrence: ES)
  Receive Date: 20121204
  Receipt Date: 20121204
  Transmission Date: 20130627
  Serious: Yes (Other)
  Sender: FDA-Public Use
  Company Number: ES-VERTEX PHARMACEUTICALS INC.-2012-025602

PATIENT
  Age: 57 Year
  Sex: Female

DRUGS (4)
  1. INCIVO [Suspect]
     Indication: HEPATITIS C
     Dosage: 375 mg, UNK
     Route: 048
     Dates: start: 20120925
  2. PEGASYS [Suspect]
     Indication: HEPATITIS C
     Dosage: 180 ?g, qw
     Route: 058
     Dates: start: 20120925, end: 20121024
  3. PEGASYS [Suspect]
     Dosage: 135 ?g, qw
     Route: 058
     Dates: start: 20121024
  4. RIBAVIRIN [Suspect]
     Indication: HEPATITIS C
     Dosage: UNK
     Route: 048
     Dates: start: 20120925

REACTIONS (2)
  - Oral candidiasis [Recovered/Resolved]
  - Neutropenia [Recovered/Resolved]
